FAERS Safety Report 15781871 (Version 1)
Quarter: 2019Q1

REPORT INFORMATION
  Report Type: Spontaneous
  Country: US (occurrence: US)
  Receive Date: 20190102
  Receipt Date: 20190102
  Transmission Date: 20190417
  Serious: No
  Sender: FDA-Public Use
  Company Number: US-BAYER-2018-242097

PATIENT
  Sex: Female

DRUGS (2)
  1. BETAJECT LITE [Suspect]
     Active Substance: DEVICE
  2. BETASERON [Suspect]
     Active Substance: INTERFERON BETA-1B

REACTIONS (2)
  - Underdose [None]
  - Needle issue [None]
